FAERS Safety Report 10047656 (Version 1)
Quarter: 2014Q1

REPORT INFORMATION
  Report Type: Spontaneous
  Country: BR (occurrence: BR)
  Receive Date: 20140331
  Receipt Date: 20140331
  Transmission Date: 20141002
  Serious: Yes (Other)
  Sender: FDA-Public Use
  Company Number: BR-PFIZER INC-2014084457

PATIENT
  Age: 56 Year
  Sex: Male
  Weight: 101 kg

DRUGS (4)
  1. LIPITOR [Suspect]
     Indication: BLOOD TRIGLYCERIDES ABNORMAL
     Dosage: 20 MG, DAILY
     Route: 048
     Dates: end: 20080216
  2. LIPITOR [Suspect]
     Indication: BLOOD CHOLESTEROL ABNORMAL
  3. DIOVAN TRIPLO [Concomitant]
     Indication: DIURETIC THERAPY
     Dosage: 2 TABLETS, DAILY
     Dates: start: 2008
  4. MONOCORDIL [Concomitant]
     Dosage: 2 TABLETS, DAILY
     Dates: start: 2008

REACTIONS (1)
  - Cardiac disorder [Unknown]
